FAERS Safety Report 17027249 (Version 1)
Quarter: 2019Q4

REPORT INFORMATION
  Report Type: Spontaneous
  Country: MY (occurrence: MY)
  Receive Date: 20191113
  Receipt Date: 20191113
  Transmission Date: 20200122
  Serious: Yes (Other)
  Sender: FDA-Public Use
  Company Number: MY-ASTRAZENECA-2019SF58968

PATIENT
  Age: 62 Year
  Sex: Female

DRUGS (1)
  1. OSIMERTINIB. [Suspect]
     Active Substance: OSIMERTINIB
     Indication: LUNG ADENOCARCINOMA
     Route: 048
     Dates: start: 201812

REACTIONS (4)
  - Congestive cardiomyopathy [Recovered/Resolved]
  - Systolic dysfunction [Recovered/Resolved]
  - Cardiotoxicity [Recovered/Resolved]
  - Cardiac failure congestive [Recovered/Resolved]
